FAERS Safety Report 10961608 (Version 1)
Quarter: 2015Q1

REPORT INFORMATION
  Report Type: Spontaneous
  Country: US (occurrence: None)
  Receive Date: 20150326
  Receipt Date: 20150326
  Transmission Date: 20150721
  Serious: Yes (Disabling)
  Sender: FDA-Public Use
  Company Number: None

PATIENT
  Age: 56 Year
  Sex: Female
  Weight: 51.26 kg

DRUGS (4)
  1. PREMARIN [Concomitant]
     Active Substance: ESTROGENS, CONJUGATED
  2. LYRICA [Concomitant]
     Active Substance: PREGABALIN
  3. BELSOMRA [Suspect]
     Active Substance: SUVOREXANT
     Indication: INSOMNIA
     Dosage: 1 PILL
     Route: 048
     Dates: start: 20150320, end: 20150324
  4. CELEBREX [Concomitant]
     Active Substance: CELECOXIB

REACTIONS (5)
  - Middle insomnia [None]
  - Pain [None]
  - Condition aggravated [None]
  - Feeling abnormal [None]
  - Drug ineffective [None]

NARRATIVE: CASE EVENT DATE: 20150325
